FAERS Safety Report 6042366-5 (Version None)
Quarter: 2009Q1

REPORT INFORMATION
  Report Type: 
  Country: None (occurrence: None)
  Receive Date: 20090116
  Receipt Date: 20090116
  Transmission Date: 20090719
  Serious: Yes (Hospitalization)
  Sender: FDA-Public Use
  Company Number: FR-WYE-G02950109

PATIENT
  Sex: Male

DRUGS (3)
  1. TORISEL [Suspect]
     Indication: RENAL CANCER METASTATIC
     Dosage: 10 DROPS
     Route: 042
     Dates: start: 20081103, end: 20081103
  2. FENOFIBRATE [Concomitant]
  3. COTAREG [Concomitant]

REACTIONS (7)
  - ABDOMINAL DISTENSION [None]
  - CONDITION AGGRAVATED [None]
  - DYSPNOEA [None]
  - ERYTHEMA [None]
  - HYPERSENSITIVITY [None]
  - HYPERTENSION [None]
  - PAIN IN EXTREMITY [None]
